FAERS Safety Report 16612347 (Version 1)
Quarter: 2019Q3

REPORT INFORMATION
  Report Type: Spontaneous
  Country: US (occurrence: US)
  Receive Date: 20190722
  Receipt Date: 20190722
  Transmission Date: 20191004
  Serious: No
  Sender: FDA-Public Use
  Company Number: US-FOUNDATIONCONSUMERHC-2019-US-009766

PATIENT
  Age: 19 Year
  Sex: Female
  Weight: 59.87 kg

DRUGS (2)
  1. PLAN B ONE-STEP [Suspect]
     Active Substance: LEVONORGESTREL
     Indication: POST COITAL CONTRACEPTION
     Dosage: 1.5 MG
     Route: 048
     Dates: start: 20190525, end: 20190525
  2. SAGAPRO BLADDER HEALTH [Concomitant]

REACTIONS (7)
  - Nausea [Unknown]
  - Abdominal pain [Unknown]
  - Breast tenderness [Unknown]
  - Feeling hot [Unknown]
  - Headache [Not Recovered/Not Resolved]
  - Throat irritation [Recovered/Resolved]
  - Hot flush [Not Recovered/Not Resolved]

NARRATIVE: CASE EVENT DATE: 20190526
